FAERS Safety Report 19964978 (Version 1)
Quarter: 2021Q4

REPORT INFORMATION
  Report Type: Spontaneous
  Country: US (occurrence: US)
  Receive Date: 20211018
  Receipt Date: 20211018
  Transmission Date: 20220303
  Serious: Yes (Other)
  Sender: FDA-Public Use
  Company Number: US-DSJP-DSU-2021-133897

PATIENT
  Sex: Male

DRUGS (1)
  1. EFFIENT [Suspect]
     Active Substance: PRASUGREL HYDROCHLORIDE
     Indication: Product used for unknown indication
     Dosage: 10 MG, QD
     Route: 048
     Dates: start: 2015

REACTIONS (7)
  - Knee arthroplasty [Unknown]
  - Haemorrhage [Unknown]
  - Contusion [Unknown]
  - Colonoscopy [Unknown]
  - Tooth disorder [Unknown]
  - Catheterisation cardiac [Unknown]
  - Sinus disorder [Unknown]
